FAERS Safety Report 19758043 (Version 3)
Quarter: 2022Q1

REPORT INFORMATION
  Report Type: Spontaneous
  Country: JP (occurrence: JP)
  Receive Date: 20210829
  Receipt Date: 20220218
  Transmission Date: 20220423
  Serious: Yes (Death, Life-Threatening, Hospitalization)
  Sender: FDA-Public Use
  Company Number: JP-JNJFOC-A-CH2018-178469

PATIENT
  Age: 72 Year
  Sex: Male
  Weight: 44.4 kg

DRUGS (24)
  1. OPSUMIT [Suspect]
     Active Substance: MACITENTAN
     Indication: Pulmonary arterial hypertension
     Dosage: 10 MG, QD
     Route: 048
     Dates: start: 20180328, end: 20190613
  2. OPSUMIT [Suspect]
     Active Substance: MACITENTAN
     Indication: Pulmonary arterial hypertension
     Dosage: 5 MG, QD
     Route: 048
     Dates: start: 20180326, end: 20180327
  3. UPTRAVI [Suspect]
     Active Substance: SELEXIPAG
     Indication: Pulmonary arterial hypertension
     Dosage: 0.2 MG, BID
     Route: 048
     Dates: start: 20180726, end: 20180831
  4. UPTRAVI [Suspect]
     Active Substance: SELEXIPAG
     Indication: Pulmonary arterial hypertension
     Dosage: 0.2 MG, BID
     Route: 048
     Dates: start: 20180915, end: 20181205
  5. UPTRAVI [Suspect]
     Active Substance: SELEXIPAG
     Dosage: 0.4 MG, BID
     Route: 048
     Dates: start: 20181206, end: 20181215
  6. ADEMPAS [Concomitant]
     Active Substance: RIOCIGUAT
     Indication: Pulmonary arterial hypertension
     Dosage: 7.5 MG, QD
     Dates: start: 20180402
  7. ADEMPAS [Concomitant]
     Active Substance: RIOCIGUAT
     Indication: Pulmonary arterial hypertension
     Route: 048
  8. ADEMPAS [Concomitant]
     Active Substance: RIOCIGUAT
     Route: 048
     Dates: start: 20180402
  9. ASPIRIN\LANSOPRAZOLE [Concomitant]
     Active Substance: ASPIRIN\LANSOPRAZOLE
     Indication: Cerebral infarction
     Dosage: 1 DF, QD
     Route: 048
     Dates: end: 20181218
  10. NICERGOLINE [Concomitant]
     Active Substance: NICERGOLINE
     Indication: Cerebral infarction
     Route: 048
  11. LIMAPROST [Concomitant]
     Active Substance: LIMAPROST
     Indication: Peripheral ischaemia
     Dosage: 15 MCG, QD
     Route: 048
  12. LIMAPROST [Concomitant]
     Active Substance: LIMAPROST
     Indication: Peripheral arterial occlusive disease
     Route: 048
  13. MONTELUKAST [Concomitant]
     Active Substance: MONTELUKAST SODIUM
     Indication: Asthma
     Dosage: 10 MG, QD
     Route: 048
  14. MONTELUKAST [Concomitant]
     Active Substance: MONTELUKAST SODIUM
     Indication: Rhinitis allergic
  15. COLCHICINE [Concomitant]
     Active Substance: COLCHICINE
     Indication: Gout
     Dosage: 0.5 MG, QD
  16. FUROSEMIDE [Concomitant]
     Active Substance: FUROSEMIDE
     Indication: Cardiac failure
     Dosage: 40 MG, QD
     Route: 048
  17. FUROSEMIDE [Concomitant]
     Active Substance: FUROSEMIDE
     Indication: Right ventricular failure
  18. METHYLCOBALAMIN [Concomitant]
     Active Substance: METHYLCOBALAMIN
     Indication: Neuropathy peripheral
     Route: 048
     Dates: end: 20180725
  19. BERAPROST SODIUM [Concomitant]
     Active Substance: BERAPROST SODIUM
     Indication: Pulmonary arterial hypertension
     Route: 048
     Dates: start: 20180406, end: 20180725
  20. OXYGEN [Concomitant]
     Active Substance: OXYGEN
     Route: 055
  21. CLOPIDOGREL [Concomitant]
     Active Substance: CLOPIDOGREL BISULFATE
     Indication: Cerebral infarction
     Route: 048
     Dates: end: 20180725
  22. EDOXABAN TOSYLATE [Concomitant]
     Active Substance: EDOXABAN TOSYLATE
     Indication: Atrial fibrillation
     Route: 048
     Dates: start: 20181225
  23. DOBUTAMINE [Concomitant]
     Active Substance: DOBUTAMINE HYDROCHLORIDE
     Indication: Right ventricular failure
     Route: 065
     Dates: start: 20190607
  24. ALTEPLASE [Concomitant]
     Active Substance: ALTEPLASE
     Indication: Cerebral infarction
     Route: 065
     Dates: start: 20190613

REACTIONS (6)
  - Right ventricular failure [Fatal]
  - Concomitant disease aggravated [Recovering/Resolving]
  - Fluid retention [Recovering/Resolving]
  - Atrial fibrillation [Not Recovered/Not Resolved]
  - Brain natriuretic peptide increased [Recovering/Resolving]
  - Generalised oedema [Recovering/Resolving]

NARRATIVE: CASE EVENT DATE: 20180819
